FAERS Safety Report 9306422 (Version 1)
Quarter: 2013Q1

REPORT INFORMATION
  Report Type: Spontaneous
  Country: JP (occurrence: None)
  Receive Date: 20130307
  Receipt Date: 20130307
  Transmission Date: 20140127
  Serious: Yes (Hospitalization)
  Sender: FDA-Public Use
  Company Number: TCI2013A00830

PATIENT
  Age: 73 Year
  Sex: Female

DRUGS (6)
  1. NESINA [Suspect]
     Indication: DIABETES MELLITUS
     Dosage: 25  MG  (25  MG,  1 IN 1 D)?05/FEB/2013  -  07/FEB/2013
     Route: 048
     Dates: start: 20130205, end: 20130207
  2. TANATRIL  (IMIDAPRIL  HYDROCHLORIDE) [Concomitant]
  3. AMARYL  (GLIMEPIRIDE) [Concomitant]
  4. LUVOX  (FLUVOXAMINE  MALEATE) [Concomitant]
  5. GOODMIN  (BROTIZOLAM) [Concomitant]
  6. DEPAS  (ETIZOLAM) [Concomitant]

REACTIONS (1)
  - Malaise [None]
